FAERS Safety Report 20092744 (Version 1)
Quarter: 2021Q4

REPORT INFORMATION
  Report Type: Spontaneous
  Country: US (occurrence: None)
  Receive Date: 20211120
  Receipt Date: 20211120
  Transmission Date: 20220304
  Serious: Yes (Other)
  Sender: FDA-Public Use
  Company Number: US-ROCHE-2956478

PATIENT
  Sex: Female
  Weight: 69.462 kg

DRUGS (1)
  1. RITUXAN [Suspect]
     Active Substance: RITUXIMAB
     Indication: Systemic lupus erythematosus
     Dosage: LAST DOSE OF RITUXIMAB WAS ON 08/SEP/2021 AND 22/SEP/2021
     Route: 065

REACTIONS (5)
  - Pain [Unknown]
  - Inflammation [Unknown]
  - Systemic lupus erythematosus [Unknown]
  - Condition aggravated [Unknown]
  - Off label use [Unknown]
